FAERS Safety Report 10192783 (Version 2)
Quarter: 2014Q2

REPORT INFORMATION
  Report Type: Spontaneous
  Country: FR (occurrence: FR)
  Receive Date: 20140523
  Receipt Date: 20140527
  Transmission Date: 20141212
  Serious: Yes (Hospitalization, Other)
  Sender: FDA-Public Use
  Company Number: FR-PFIZER INC-2014142622

PATIENT
  Age: 83 Year
  Sex: Male

DRUGS (10)
  1. CEFIXIME [Suspect]
     Dosage: UNK
     Route: 048
     Dates: start: 20140303
  2. TRIATEC [Interacting]
     Dosage: 1 DF, DAILY
     Route: 048
  3. LASILIX [Interacting]
     Dosage: 1 DF, DAILY
     Route: 048
  4. ADENURIC [Interacting]
     Indication: GOUT
     Dosage: UNK
     Route: 048
     Dates: start: 20140124, end: 201404
  5. COLCHICINE OPOCALIUM [Interacting]
     Indication: GOUT
     Dosage: UNK
     Route: 048
     Dates: start: 2014
  6. KETUM [Interacting]
     Indication: GOUT
     Dosage: 1 DF, DAILY
     Route: 065
  7. LEVOTHYROXINE [Concomitant]
     Dosage: UNK
  8. TAHOR [Concomitant]
     Dosage: UNK
  9. KARDEGIC [Concomitant]
     Dosage: UNK
  10. INEXIUM [Concomitant]
     Dosage: UNK

REACTIONS (6)
  - Drug interaction [Recovered/Resolved]
  - Renal failure acute [Recovered/Resolved]
  - Hyperkalaemia [Recovered/Resolved]
  - Gait disturbance [Recovered/Resolved]
  - Somnolence [Recovered/Resolved]
  - General physical health deterioration [Recovered/Resolved]
